FAERS Safety Report 6568198-7 (Version None)
Quarter: 2010Q1

REPORT INFORMATION
  Report Type: 
  Country: None (occurrence: None)
  Receive Date: 20100128
  Receipt Date: 20100118
  Transmission Date: 20100710
  Serious: Yes (Hospitalization)
  Sender: FDA-Public Use
  Company Number: TCI2010A00116

PATIENT
  Age: 62 Year
  Sex: Female

DRUGS (14)
  1. ACTOS [Suspect]
     Indication: DIABETES MELLITUS
     Dosage: 15 MG (15 MG, 1IN 1 D) PER ORAL; (15 MG, 3 IN 1 WK) PER ORAL
     Route: 048
     Dates: start: 20030506, end: 20090426
  2. ACTOS [Suspect]
     Indication: DIABETES MELLITUS
     Dosage: 15 MG (15 MG, 1IN 1 D) PER ORAL; (15 MG, 3 IN 1 WK) PER ORAL
     Route: 048
     Dates: start: 20090427, end: 20091013
  3. PREDNISOLONE [Suspect]
     Dosage: 7.5 MG (7.5 MG, 1 IN 1 D) 1) PER ORAL
     Route: 048
     Dates: start: 19770201
  4. DOXAZOSIN MESYLATE [Suspect]
     Dosage: 4 MG (2 MG, 2 IN 1 D) PER ORAL
     Route: 048
     Dates: start: 20050301
  5. HUMALOG MIX 50 (INSULIN LISPRO) [Concomitant]
  6. METOPROLOL TARTRATE [Concomitant]
  7. DIOVAN [Concomitant]
  8. AMLODIN OP (AMLODIPINE BESILATE) [Concomitant]
  9. LIPITOR [Concomitant]
  10. ASPIRIN [Concomitant]
  11. ALLOPURINOL [Concomitant]
  12. LASIX [Concomitant]
  13. BONALON (ALENDRONIC ACID) [Concomitant]
  14. NOVORIN 30R (XYLOMETAZOLINE HYDROCHLORIDE) [Concomitant]

REACTIONS (6)
  - DIABETES MELLITUS [None]
  - FALL [None]
  - FIBULA FRACTURE [None]
  - HYPERTENSION [None]
  - OEDEMA PERIPHERAL [None]
  - PLEURAL EFFUSION [None]
